FAERS Safety Report 20635979 (Version 2)
Quarter: 2022Q2

REPORT INFORMATION
  Report Type: Report from Study
  Country: ZA (occurrence: ZA)
  Receive Date: 20220325
  Receipt Date: 20220404
  Transmission Date: 20220721
  Serious: Yes (Hospitalization, Other)
  Sender: FDA-Public Use
  Company Number: ZA-NOVARTISPH-NVSC2022ZA066118

PATIENT
  Age: 8 Month
  Sex: Male
  Weight: 6.7 kg

DRUGS (2)
  1. CEFTRIAXONE [Suspect]
     Active Substance: CEFTRIAXONE
     Indication: Pneumonia
     Dosage: NO TREATMENT
     Route: 065
  2. CEFTRIAXONE [Suspect]
     Active Substance: CEFTRIAXONE
     Dosage: 350 MG
     Route: 042
     Dates: start: 20220315

REACTIONS (4)
  - General physical health deterioration [Not Recovered/Not Resolved]
  - Diarrhoea [Recovering/Resolving]
  - Pneumonia [Not Recovered/Not Resolved]
  - Sepsis neonatal [Recovered/Resolved]

NARRATIVE: CASE EVENT DATE: 20220309
